FAERS Safety Report 13497149 (Version 1)
Quarter: 2017Q2

REPORT INFORMATION
  Report Type: Report from Study
  Country: DE (occurrence: DE)
  Receive Date: 20170428
  Receipt Date: 20170428
  Transmission Date: 20170830
  Serious: Yes (Hospitalization, Other)
  Sender: FDA-Public Use
  Company Number: DE-TEVA-745015GER

PATIENT
  Age: 42 Year
  Sex: Female

DRUGS (3)
  1. COPAXONE [Suspect]
     Active Substance: GLATIRAMER ACETATE
     Indication: MULTIPLE SCLEROSIS
     Dosage: 20 MILLIGRAM DAILY;
     Route: 058
     Dates: start: 20070817, end: 20161219
  2. RAMIPRIL 5 MG/ HCT 25 MG [Concomitant]
     Indication: HYPERTENSION
     Dosage: .5 DOSAGE FORMS DAILY; 1 DSF = RAMIPRIL 5 MG/ HYDROCHLOROTHIAZIDE 25 MG
     Route: 048
  3. CLINDAMYCIN. [Suspect]
     Active Substance: CLINDAMYCIN
     Indication: INJECTION SITE REACTION
     Dosage: 300 MILLIGRAM DAILY;
     Route: 048
     Dates: start: 20160808, end: 20160808

REACTIONS (3)
  - Injection site necrosis [Recovered/Resolved]
  - Drug hypersensitivity [Recovered/Resolved]
  - Supraventricular tachycardia [Recovered/Resolved]

NARRATIVE: CASE EVENT DATE: 201608
